FAERS Safety Report 11906713 (Version 1)
Quarter: 2016Q1

REPORT INFORMATION
  Report Type: Spontaneous
  Country: US (occurrence: None)
  Receive Date: 20160108
  Receipt Date: 20160108
  Transmission Date: 20160526
  Serious: Yes (Disabling)
  Sender: FDA-Public Use
  Company Number: None

PATIENT
  Age: 57 Year
  Sex: Female

DRUGS (3)
  1. PERCOCET [Concomitant]
     Active Substance: ACETAMINOPHEN\OXYCODONE HYDROCHLORIDE
  2. KLONOPIN [Concomitant]
     Active Substance: CLONAZEPAM
  3. FENTANYL. [Suspect]
     Active Substance: FENTANYL
     Indication: PAIN
     Dosage: 1?EVERY 48 HOURS APPLIED TO A SURFACE, USUALLY THE SKIN
     Route: 061
     Dates: start: 20160102, end: 20160103

REACTIONS (5)
  - Drug effect incomplete [None]
  - Drug withdrawal syndrome [None]
  - Pain [None]
  - Disease recurrence [None]
  - Product adhesion issue [None]

NARRATIVE: CASE EVENT DATE: 20160103
